FAERS Safety Report 4604425-0 (Version None)
Quarter: 2005Q1

REPORT INFORMATION
  Report Type: 
  Country: None (occurrence: None)
  Receive Date: 20050215
  Receipt Date: 20041012
  Transmission Date: 20050727
  Serious: Yes (Other)
  Sender: FDA-Public Use
  Company Number: 358729

PATIENT
  Sex: Male

DRUGS (3)
  1. PEGASYS [Suspect]
     Dates: start: 20040209
  2. COPEGUS [Suspect]
     Dosage: 600 MG 2 PER DAY ORAL
     Route: 048
     Dates: start: 20040209
  3. ST. JOHN'S WORT (HYPERICUM) [Concomitant]

REACTIONS (36)
  - ABDOMINAL PAIN [None]
  - ABNORMAL BEHAVIOUR [None]
  - ANAEMIA [None]
  - ANXIETY [None]
  - ARTHRALGIA [None]
  - ASTHENIA [None]
  - CANDIDIASIS [None]
  - CHROMATURIA [None]
  - COUGH [None]
  - DECREASED APPETITE [None]
  - DEPRESSION [None]
  - DIARRHOEA [None]
  - DIZZINESS [None]
  - EYE IRRITATION [None]
  - FATIGUE [None]
  - FEELING HOT AND COLD [None]
  - GLOSSODYNIA [None]
  - HEADACHE [None]
  - HYPERHIDROSIS [None]
  - HYPERTENSION [None]
  - INJECTION SITE ERYTHEMA [None]
  - INJECTION SITE INFLAMMATION [None]
  - INJECTION SITE PRURITUS [None]
  - INJECTION SITE REACTION [None]
  - INSOMNIA [None]
  - IRRITABILITY [None]
  - MEMORY IMPAIRMENT [None]
  - MYALGIA [None]
  - NAUSEA [None]
  - ORAL DISCOMFORT [None]
  - ORAL INTAKE REDUCED [None]
  - RED BLOOD CELL COUNT DECREASED [None]
  - STOMATITIS [None]
  - ULCER [None]
  - WEIGHT DECREASED [None]
  - WHITE BLOOD CELL COUNT DECREASED [None]
